FAERS Safety Report 5606433-X (Version None)
Quarter: 2008Q1

REPORT INFORMATION
  Report Type: 
  Country: None (occurrence: None)
  Receive Date: 20080129
  Receipt Date: 20071029
  Transmission Date: 20080703
  Serious: No
  Sender: FDA-Public Use
  Company Number: A0691083A

PATIENT
  Sex: Female

DRUGS (3)
  1. WELLBUTRIN [Suspect]
     Indication: DEPRESSION
     Dosage: 300MG UNKNOWN
     Route: 048
     Dates: start: 20071019
  2. PAXIL CR [Suspect]
     Indication: DEPRESSION
     Route: 048
     Dates: start: 20070919, end: 20071018
  3. NERVE MEDICATION [Concomitant]
     Route: 048

REACTIONS (4)
  - ANXIETY [None]
  - CRYING [None]
  - MENTAL DISORDER [None]
  - TREMOR [None]
